FAERS Safety Report 8910676 (Version 1)
Quarter: 2012Q4

REPORT INFORMATION
  Report Type: Spontaneous
  Country: GB (occurrence: None)
  Receive Date: 20121113
  Receipt Date: 20121113
  Transmission Date: 20130627
  Serious: Yes (Other)
  Sender: FDA-Public Use
  Company Number: 2012AP003741

PATIENT
  Sex: Male

DRUGS (6)
  1. RAMIPRIL (RAMIPRIL) [Suspect]
     Route: 048
  2. RAMIPRIL (RAMIPRIL) [Suspect]
     Route: 048
  3. RAMIPRIL (RAMIPRIL) [Suspect]
     Route: 048
  4. RAMIPRIL (RAMIPRIL) [Suspect]
     Route: 048
  5. ASPIRIN [Concomitant]
  6. BISOPROLOL FUMARATE (BISOPROLOL FUMARATE) [Concomitant]

REACTIONS (1)
  - Thrombophlebitis [None]
